FAERS Safety Report 23428225 (Version 4)
Quarter: 2024Q2

REPORT INFORMATION
  Report Type: Spontaneous
  Country: US (occurrence: US)
  Receive Date: 20240122
  Receipt Date: 20240620
  Transmission Date: 20240716
  Serious: No
  Sender: FDA-Public Use
  Company Number: US-PFIZER INC-202300311136

PATIENT
  Age: 53 Year
  Sex: Female

DRUGS (5)
  1. LITFULO [Suspect]
     Active Substance: RITLECITINIB TOSYLATE
     Indication: Alopecia scarring
     Dosage: 50 MG
     Route: 048
     Dates: start: 20230915
  2. DOXYCYCLINE [Concomitant]
     Active Substance: DOXYCYCLINE\DOXYCYCLINE HYCLATE
     Indication: Dermatitis
     Dosage: 100 MG, 2X/DAY
  3. TACROLIMUS [Concomitant]
     Active Substance: TACROLIMUS
     Indication: Dermatitis
     Dosage: 0.1 G/ML
  4. VITAMIN D NOS [Concomitant]
     Active Substance: CHOLECALCIFEROL\ERGOCALCIFEROL
     Dosage: 3000 IU, WEEKLY
  5. ZINC [Concomitant]
     Active Substance: PYRITHIONE ZINC\ZINC\ZINC CHLORIDE
     Dosage: 50 MG, DAILY

REACTIONS (2)
  - COVID-19 [Recovered/Resolved with Sequelae]
  - Off label use [Unknown]
